FAERS Safety Report 13040540 (Version 1)
Quarter: 2016Q4

REPORT INFORMATION
  Report Type: Spontaneous
  Country: US (occurrence: US)
  Receive Date: 20161219
  Receipt Date: 20161219
  Transmission Date: 20170207
  Serious: No
  Sender: FDA-Public Use
  Company Number: US-SA-2016SA053749

PATIENT
  Age: 57 Year
  Sex: Female

DRUGS (8)
  1. PLAVIX [Suspect]
     Active Substance: CLOPIDOGREL BISULFATE
     Indication: ANTICOAGULANT THERAPY
     Route: 065
  2. MIDODRINE [Concomitant]
     Active Substance: MIDODRINE
  3. DROXIDOPA [Interacting]
     Active Substance: DROXIDOPA
     Route: 065
     Dates: start: 20151209
  4. MIDRIN [Concomitant]
     Active Substance: ACETAMINOPHEN\DICHLORALPHENAZONE\ISOMETHEPTENE
     Indication: MIGRAINE
  5. FIORICET [Concomitant]
     Active Substance: ACETAMINOPHEN\BUTALBITAL\CAFFEINE
     Indication: MIGRAINE
  6. GABAPENTIN. [Concomitant]
     Active Substance: GABAPENTIN
     Indication: LIMB DISCOMFORT
  7. ATORVASTATIN [Concomitant]
     Active Substance: ATORVASTATIN
  8. DROXIDOPA [Interacting]
     Active Substance: DROXIDOPA
     Dosage: DOSE: 300MG (100MG)
     Route: 065
     Dates: start: 20151117

REACTIONS (5)
  - Confusional state [Unknown]
  - Dizziness [Unknown]
  - Drug interaction [Unknown]
  - Amnesia [Unknown]
  - Anxiety [Unknown]
